FAERS Safety Report 26217645 (Version 1)
Quarter: 2025Q4

REPORT INFORMATION
  Report Type: Spontaneous
  Country: EU (occurrence: EU)
  Receive Date: 20251231
  Receipt Date: 20251231
  Transmission Date: 20260119
  Serious: Yes (Other)
  Sender: ROCHE
  Company Number: EU-ROCHE-10000471406

PATIENT
  Sex: Female

DRUGS (10)
  1. VABYSMO [Suspect]
     Active Substance: FARICIMAB-SVOA
     Indication: Neovascular age-related macular degeneration
  2. VABYSMO [Suspect]
     Active Substance: FARICIMAB-SVOA
  3. VABYSMO [Suspect]
     Active Substance: FARICIMAB-SVOA
  4. VABYSMO [Suspect]
     Active Substance: FARICIMAB-SVOA
  5. VABYSMO [Suspect]
     Active Substance: FARICIMAB-SVOA
  6. VABYSMO [Suspect]
     Active Substance: FARICIMAB-SVOA
  7. VABYSMO [Suspect]
     Active Substance: FARICIMAB-SVOA
  8. VABYSMO [Suspect]
     Active Substance: FARICIMAB-SVOA
  9. PREDNISONE [Concomitant]
     Active Substance: PREDNISONE
     Indication: Product used for unknown indication
     Dosage: 3 MG/D
  10. LUCENTIS [Concomitant]
     Active Substance: RANIBIZUMAB

REACTIONS (4)
  - Hypopyon [Unknown]
  - Vitritis [Recovering/Resolving]
  - Visual acuity reduced [Unknown]
  - Endophthalmitis [Unknown]
